FAERS Safety Report 7402873-7 (Version None)
Quarter: 2011Q1

REPORT INFORMATION
  Report Type: 
  Country: None (occurrence: None)
  Receive Date: 20110330
  Receipt Date: 20110321
  Transmission Date: 20110831
  Serious: Yes (Life-Threatening)
  Sender: FDA-Public Use
  Company Number: LEO-2010-00909

PATIENT
  Age: 76 Year
  Sex: Male

DRUGS (4)
  1. INNOHEP [Suspect]
     Dosage: 14000 IU (14000 IU,1 IN 1 D),SUBCUTANEOUS
     Route: 058
     Dates: start: 20100727, end: 20100727
  2. COAPROVEL (HYDROCHLOROTHIAZIDE, IRBESARTAN) [Concomitant]
  3. INSULIN (INSULIN) [Concomitant]
  4. PREVISCAN (FLUINDIONE) [Concomitant]

REACTIONS (2)
  - SUBDURAL HAEMATOMA [None]
  - CONDITION AGGRAVATED [None]
